FAERS Safety Report 18120639 (Version 3)
Quarter: 2020Q4

REPORT INFORMATION
  Report Type: Report from Study
  Country: US (occurrence: US)
  Receive Date: 20200806
  Receipt Date: 20201003
  Transmission Date: 20210113
  Serious: No
  Sender: FDA-Public Use
  Company Number: NVSC2020US217731

PATIENT
  Sex: Male

DRUGS (2)
  1. ENTRESTO [Suspect]
     Active Substance: SACUBITRIL\VALSARTAN
     Indication: PRODUCT USED FOR UNKNOWN INDICATION
     Dosage: 200 MG, BID (97/103 MG) (STARTED APPROXIMATELY NOV 2019 OR DEC 2019)
     Route: 048
     Dates: start: 2019
  2. SPIRONOLACTONE. [Concomitant]
     Active Substance: SPIRONOLACTONE
     Indication: PRODUCT USED FOR UNKNOWN INDICATION
     Dosage: UNK UNK, UNKNOWN
     Route: 065

REACTIONS (6)
  - Ejection fraction abnormal [Unknown]
  - Feeling abnormal [Unknown]
  - Memory impairment [Unknown]
  - Productive cough [Unknown]
  - Fatigue [Unknown]
  - Product dose omission issue [Unknown]
